FAERS Safety Report 26168128 (Version 1)
Quarter: 2025Q4

REPORT INFORMATION
  Report Type: Report from Study
  Country: US (occurrence: US)
  Receive Date: 20251217
  Receipt Date: 20251217
  Transmission Date: 20260117
  Serious: Yes (Hospitalization)
  Sender: JOHNSON AND JOHNSON
  Company Number: US-JNJFOC-20251216662

PATIENT
  Age: 56 Year
  Sex: Male

DRUGS (17)
  1. SPRAVATO [Suspect]
     Active Substance: ESKETAMINE
     Indication: Depression
     Dosage: ^56 MG, 18 TOTAL DOSES^
     Route: 045
     Dates: start: 20190521, end: 20190808
  2. SPRAVATO [Suspect]
     Active Substance: ESKETAMINE
     Dosage: ^84 MG, 28 TOTAL DOSES^
     Route: 045
     Dates: start: 20190813, end: 20200427
  3. SPRAVATO [Suspect]
     Active Substance: ESKETAMINE
     Dosage: ^56 MG, 1 TOTAL DOSE^
     Route: 045
     Dates: start: 20200622, end: 20200622
  4. SPRAVATO [Suspect]
     Active Substance: ESKETAMINE
     Dosage: ^84 MG, 29 TOTAL DOSES^
     Route: 045
     Dates: start: 20200805, end: 20210526
  5. SPRAVATO [Suspect]
     Active Substance: ESKETAMINE
     Dosage: ^56 MG, 11 TOTAL DOSES^
     Route: 045
     Dates: start: 20210602, end: 20210810
  6. SPRAVATO [Suspect]
     Active Substance: ESKETAMINE
     Dosage: ^84 MG, 102 TOTAL DOSES^
     Route: 045
     Dates: start: 20210818, end: 20230324
  7. SPRAVATO [Suspect]
     Active Substance: ESKETAMINE
     Dosage: ^56 MG, 1 TOTAL DOSE^
     Route: 045
     Dates: start: 20230329, end: 20230329
  8. SPRAVATO [Suspect]
     Active Substance: ESKETAMINE
     Dosage: ^84 MG, 30 TOTAL DOSES^
     Route: 045
     Dates: start: 20230331, end: 20230727
  9. SPRAVATO [Suspect]
     Active Substance: ESKETAMINE
     Dosage: ^UNKNOWN DOSE, 1 TOTAL DOSE^
     Route: 045
     Dates: start: 20230801, end: 20230801
  10. SPRAVATO [Suspect]
     Active Substance: ESKETAMINE
     Dosage: ^84 MG, 48 TOTAL DOSES^
     Route: 045
     Dates: start: 20230803, end: 20240201
  11. SPRAVATO [Suspect]
     Active Substance: ESKETAMINE
     Dosage: ^56 MG, 1 TOTAL DOSE^
     Route: 045
     Dates: start: 20240205, end: 20240205
  12. SPRAVATO [Suspect]
     Active Substance: ESKETAMINE
     Dosage: ^84 MG, 11 TOTAL DOSES^
     Route: 045
     Dates: start: 20240208, end: 20240314
  13. SPRAVATO [Suspect]
     Active Substance: ESKETAMINE
     Dosage: ^56 MG, 3 TOTAL DOSES^
     Route: 045
     Dates: start: 20240909, end: 20240916
  14. SPRAVATO [Suspect]
     Active Substance: ESKETAMINE
     Dosage: ^84 MG, 4 TOTAL DOSES^
     Route: 045
     Dates: start: 20240923, end: 20241002
  15. SPRAVATO [Suspect]
     Active Substance: ESKETAMINE
     Dosage: ^UNKNOWN DOSE., 1 TOTAL DOSE^
     Route: 045
     Dates: start: 20241009, end: 20241009
  16. SPRAVATO [Suspect]
     Active Substance: ESKETAMINE
     Dosage: ^84 MG, 91 TOTAL DOSES^
     Route: 045
     Dates: start: 20241014, end: 20251208
  17. SPRAVATO [Suspect]
     Active Substance: ESKETAMINE
     Dosage: ^84 MG, RECENT ADMINISTERED DOSE^
     Route: 045
     Dates: start: 20251210, end: 20251210

REACTIONS (1)
  - Suicidal ideation [Unknown]

NARRATIVE: CASE EVENT DATE: 20251210
